FAERS Safety Report 5875561-6 (Version None)
Quarter: 2008Q3

REPORT INFORMATION
  Report Type: 
  Country: None (occurrence: None)
  Receive Date: 20080909
  Receipt Date: 20080827
  Transmission Date: 20090109
  Serious: Yes (Hospitalization)
  Sender: FDA-Public Use
  Company Number: NL-ELI_LILLY_AND_COMPANY-NL200806005871

PATIENT
  Sex: Female
  Weight: 76 kg

DRUGS (15)
  1. HUMALOG [Suspect]
     Dosage: UNK, 2/D
     Route: 058
     Dates: start: 20080301, end: 20080616
  2. HUMALOG [Suspect]
     Dosage: UNK, UNK
     Dates: start: 20080617, end: 20080617
  3. ACETYLSALICYLIC ACID SRT [Concomitant]
     Dosage: 1 D/F, DAILY (1/D)
     Route: 048
  4. CALCIUM [Concomitant]
     Dosage: 500 MG, DAILY (1/D)
     Route: 048
  5. DIAZEPAM [Concomitant]
     Dosage: 5 MG, UNK
  6. DIPHANTOINE [Concomitant]
     Dosage: 100 MG, UNK
     Route: 048
  7. FLUVOXAMINE MALEATE [Concomitant]
     Dosage: 100 MG, UNK
     Route: 048
  8. FOLIC ACID [Concomitant]
     Dosage: 5 MG, DAILY (1/D)
     Route: 048
  9. FUROSEMIDE [Concomitant]
     Dosage: 40 MG, DAILY (1/D)
  10. OMEPRAZOLE [Concomitant]
     Dosage: 20 MG, DAILY (1/D)
  11. SALOFALK [Concomitant]
     Dosage: 1 D/F, 2/D
  12. SALOFALK [Concomitant]
     Dosage: 2 D/F, DAILY (1/D)
  13. SERETIDE [Concomitant]
  14. SIMVASTATIN [Concomitant]
     Dosage: 40 MG, DAILY (1/D)
  15. CLEMASTINE FUMARATE [Concomitant]

REACTIONS (3)
  - PAIN [None]
  - PRURITUS GENERALISED [None]
  - RASH [None]
